FAERS Safety Report 6710642-6 (Version None)
Quarter: 2010Q2

REPORT INFORMATION
  Report Type: 
  Country: None (occurrence: None)
  Receive Date: 20100504
  Receipt Date: 20100504
  Transmission Date: 20101027
  Serious: Yes (Disabling)
  Sender: FDA-Public Use
  Company Number: None

PATIENT
  Sex: Male
  Weight: 87.9978 kg

DRUGS (1)
  1. ZICAM GEL MATRIXX INITIATIVES INC [Suspect]
     Indication: NASOPHARYNGITIS
     Dosage: 1 SQUIRT 4 HOURS INTER NASAL
     Route: 045
     Dates: start: 20100208, end: 20100213

REACTIONS (1)
  - ANOSMIA [None]
